FAERS Safety Report 8105143-7 (Version None)
Quarter: 2012Q1

REPORT INFORMATION
  Report Type: 
  Country: None (occurrence: None)
  Receive Date: 20120201
  Receipt Date: 20120110
  Transmission Date: 20120608
  Serious: Yes (Other)
  Sender: FDA-Public Use
  Company Number: US-ROXANE LABORATORIES, INC.-2012-EU-00131GD

PATIENT
  Age: 65 Year
  Sex: Male

DRUGS (1)
  1. PREDNISONE TAB [Suspect]
     Dosage: 10 MG

REACTIONS (8)
  - PYREXIA [None]
  - FATIGUE [None]
  - CLOSTRIDIUM DIFFICILE COLITIS [None]
  - CYTOMEGALOVIRUS COLITIS [None]
  - DIARRHOEA [None]
  - ABDOMINAL PAIN [None]
  - RECTAL HAEMORRHAGE [None]
  - CHILLS [None]
